FAERS Safety Report 5056899-1 (Version None)
Quarter: 2006Q2

REPORT INFORMATION
  Report Type: 
  Country: None (occurrence: None)
  Receive Date: 20060620
  Receipt Date: 20050209
  Transmission Date: 20061013
  Serious: Yes (Other)
  Sender: FDA-Public Use
  Company Number: MK200502-0126-1

PATIENT
  Sex: Male

DRUGS (2)
  1. OPTIRAY 320 [Suspect]
     Indication: CATHETERISATION CARDIAC
     Dosage: 10 ML,ONE TIME, IA
     Dates: start: 20041116, end: 20041116
  2. BENDRYL [Concomitant]

REACTIONS (4)
  - ANAPHYLACTOID REACTION [None]
  - HYPOTENSION [None]
  - HYPOXIA [None]
  - MYOCARDIAL INFARCTION [None]
